FAERS Safety Report 16101417 (Version 25)
Quarter: 2023Q1

REPORT INFORMATION
  Report Type: Report from Study
  Country: GB (occurrence: GB)
  Receive Date: 20190321
  Receipt Date: 20230210
  Transmission Date: 20230418
  Serious: Yes (Other)
  Sender: FDA-Public Use
  Company Number: None

PATIENT
  Age: 51 Year
  Sex: Female

DRUGS (59)
  1. ANASTROZOLE [Suspect]
     Active Substance: ANASTROZOLE
     Indication: Breast cancer metastatic
     Dosage: 1 MG, QD
     Route: 048
     Dates: start: 20170127
  2. DOCETAXEL [Suspect]
     Active Substance: DOCETAXEL
     Indication: Breast cancer metastatic
     Dosage: 130 MG, TIW
     Route: 042
     Dates: start: 20160511, end: 20160808
  3. PERTUZUMAB [Suspect]
     Active Substance: PERTUZUMAB
     Indication: Breast cancer metastatic
     Dosage: 420 MG, TIW (3 WEEK)
     Route: 042
     Dates: start: 20160510, end: 20160510
  4. TRASTUZUMAB [Suspect]
     Active Substance: TRASTUZUMAB
     Indication: Breast cancer metastatic
     Dosage: 525 MG, TIW, LOADING DOSE
     Route: 042
     Dates: start: 20160510, end: 20160510
  5. TRASTUZUMAB [Suspect]
     Active Substance: TRASTUZUMAB
     Indication: HER2 positive breast cancer
     Dosage: 336 MILLIGRAM, Q3WK
     Dates: start: 20180915
  6. NERATINIB [Suspect]
     Active Substance: NERATINIB
     Indication: Breast cancer
     Dosage: 378 MG, TIW
     Route: 042
     Dates: start: 20201013
  7. ACETAMINOPHEN [Concomitant]
     Active Substance: ACETAMINOPHEN
     Route: 048
  8. CODEINE PHOSPHATE [Concomitant]
     Active Substance: CODEINE PHOSPHATE
     Route: 048
     Dates: start: 20161101, end: 20161101
  9. MORPHINE [Concomitant]
     Active Substance: MORPHINE
     Route: 048
     Dates: start: 20161101, end: 20161102
  10. MORPHINE SULFATE [Concomitant]
     Active Substance: MORPHINE SULFATE
     Route: 048
  11. CHLORPHENIRAMINE MALEATE [Concomitant]
     Active Substance: CHLORPHENIRAMINE MALEATE
     Route: 048
     Dates: start: 20160627, end: 20160830
  12. CYCLIZINE [Concomitant]
     Active Substance: CYCLIZINE
     Route: 048
     Dates: start: 20160627, end: 20160830
  13. ENOXAPARIN [Concomitant]
     Active Substance: ENOXAPARIN
     Route: 058
     Dates: start: 20161101, end: 20161101
  14. DEXAMETHASONE [Concomitant]
     Active Substance: DEXAMETHASONE
     Route: 048
     Dates: start: 20160511, end: 20160830
  15. METOCLOPRAMIDE [Concomitant]
     Active Substance: METOCLOPRAMIDE
     Route: 048
     Dates: start: 20160511, end: 20160830
  16. PREGABALIN [Concomitant]
     Active Substance: PREGABALIN
  17. IRON [Concomitant]
     Active Substance: IRON
     Route: 048
     Dates: start: 20190612
  18. DOMPERIDONE [Concomitant]
     Active Substance: DOMPERIDONE
     Indication: Product used for unknown indication
     Dates: start: 20191211
  19. RAMIPRIL [Concomitant]
     Active Substance: RAMIPRIL
     Indication: Ejection fraction decreased
     Route: 048
     Dates: start: 20161005
  20. TRASTUZUMAB [Suspect]
     Active Substance: TRASTUZUMAB
     Indication: Product used for unknown indication
     Route: 042
     Dates: start: 20170724
  21. TRASTUZUMAB [Suspect]
     Active Substance: TRASTUZUMAB
     Indication: Product used for unknown indication
     Route: 042
     Dates: start: 20160627, end: 20160627
  22. TRASTUZUMAB [Suspect]
     Active Substance: TRASTUZUMAB
     Indication: Product used for unknown indication
     Route: 042
     Dates: start: 20160920, end: 20170110
  23. MORPHINE [Concomitant]
     Active Substance: MORPHINE
     Indication: Product used for unknown indication
     Route: 048
  24. NERATINIB [Suspect]
     Active Substance: NERATINIB
     Indication: Breast cancer
     Dosage: 336 MG, TIW
     Route: 042
     Dates: start: 20180925, end: 20200922
  25. TRASTUZUMAB [Suspect]
     Active Substance: TRASTUZUMAB
     Indication: Product used for unknown indication
     Dosage: TRASTUZUMAB WAS GIVEN WITH PERTUZUMAB
     Route: 042
     Dates: start: 20180510
  26. TRASTUZUMAB [Suspect]
     Active Substance: TRASTUZUMAB
     Indication: Product used for unknown indication
     Dosage: 378 MG, 3/WEEK
     Route: 042
     Dates: start: 20201013
  27. TRASTUZUMAB [Suspect]
     Active Substance: TRASTUZUMAB
     Indication: Breast cancer metastatic
     Dosage: 336 MILLIGRAM, 3/WEEK
     Route: 042
     Dates: start: 20170724, end: 20180904
  28. TRASTUZUMAB [Suspect]
     Active Substance: TRASTUZUMAB
     Indication: Product used for unknown indication
     Dosage: 336 MG, 3/WEEK
     Route: 042
     Dates: start: 20180925, end: 20200922
  29. TRASTUZUMAB [Suspect]
     Active Substance: TRASTUZUMAB
     Indication: Product used for unknown indication
     Dosage: 378 MILLIGRAM, Q3WK
     Route: 036
     Dates: start: 20201013
  30. TRASTUZUMAB [Suspect]
     Active Substance: TRASTUZUMAB
     Indication: Product used for unknown indication
     Dosage: 525 MG, TIW, LOADING DOSE
     Route: 042
     Dates: start: 20201013
  31. TRASTUZUMAB [Suspect]
     Active Substance: TRASTUZUMAB
     Indication: Product used for unknown indication
     Dosage: 357 MILLIGRAM, Q3WK
     Route: 042
     Dates: start: 20170201, end: 20170226
  32. TRASTUZUMAB [Suspect]
     Active Substance: TRASTUZUMAB
     Indication: Product used for unknown indication
     Dosage: 336 MILLIGRAM
     Dates: start: 20200922
  33. TRASTUZUMAB [Suspect]
     Active Substance: TRASTUZUMAB
     Indication: HER2 positive breast cancer
     Dosage: 336 MILLIGRAM, Q3WK
     Dates: start: 20180925
  34. TRASTUZUMAB [Suspect]
     Active Substance: TRASTUZUMAB
     Indication: Product used for unknown indication
     Dosage: TRASTUZUMAB WAS GIVEN WITH PERTUZUMAB
     Dates: start: 20180510
  35. TRASTUZUMAB [Suspect]
     Active Substance: TRASTUZUMAB
     Indication: Breast cancer metastatic
     Dosage: 525 MG, LOADING DOSE
     Route: 042
     Dates: start: 20160510, end: 20160510
  36. ANASTROZOLE [Suspect]
     Active Substance: ANASTROZOLE
     Indication: Breast cancer metastatic
     Dosage: 1 MG, DAILY
     Route: 048
     Dates: start: 20170127
  37. DOCETAXEL [Suspect]
     Active Substance: DOCETAXEL
     Indication: Breast cancer metastatic
     Dosage: 120 MILLIGRAM, 3/WEEK
     Route: 042
     Dates: start: 20160808, end: 20160830
  38. DOCETAXEL [Suspect]
     Active Substance: DOCETAXEL
     Indication: Breast cancer metastatic
     Dosage: 130 MILLIGRAM, 3/WEEK
     Route: 042
     Dates: start: 20160511, end: 20160808
  39. PERTUZUMAB [Suspect]
     Active Substance: PERTUZUMAB
     Indication: Product used for unknown indication
  40. PERTUZUMAB [Suspect]
     Active Substance: PERTUZUMAB
     Indication: Breast cancer metastatic
     Dates: start: 20180510
  41. TRASTUZUMAB [Suspect]
     Active Substance: TRASTUZUMAB
     Indication: Breast cancer metastatic
     Dosage: 367.5 MILLIGRAM, 3/WEEK (ADDITIONAL INFO: ROUTE:042) (CUMULATIVE DOSE: 525 MG) (DF: 230)
     Route: 042
     Dates: start: 20160920, end: 20170610
  42. TRASTUZUMAB [Suspect]
     Active Substance: TRASTUZUMAB
     Indication: Breast cancer metastatic
     Dosage: 388.5 MILLIGRAM, 3/WEEK (ADDITIONAL INFO: ROUTE:042) (CUMULATIVE DOSE: 525 MG) (DF: 230)
     Route: 042
     Dates: start: 20160718, end: 20160830
  43. TRASTUZUMAB [Suspect]
     Active Substance: TRASTUZUMAB
     Indication: Breast cancer metastatic
     Dosage: 357 MILLIGRAM, EVERY 3 WEEK (ADDITIONAL INFO: ROUTE:042, DF: 230) (CUMULATIVE DOSE: 525 MG)
     Route: 042
     Dates: start: 20170201, end: 20170426
  44. TRASTUZUMAB [Suspect]
     Active Substance: TRASTUZUMAB
     Indication: Product used for unknown indication
     Dosage: 336 MILLIGRAM, 3/WEEK
     Route: 042
     Dates: start: 20170724
  45. TRASTUZUMAB [Suspect]
     Active Substance: TRASTUZUMAB
     Indication: Product used for unknown indication
     Dosage: 346.5 MILLIGRAM, EVERY 3 WEEKS
     Route: 042
     Dates: start: 20170517, end: 20170703
  46. TRASTUZUMAB [Suspect]
     Active Substance: TRASTUZUMAB
     Indication: Breast cancer metastatic
     Dosage: 378 MILLIGRAM
     Route: 042
     Dates: start: 20160627, end: 20160627
  47. DOCETAXEL [Suspect]
     Active Substance: DOCETAXEL
     Indication: Breast cancer metastatic
     Dosage: 130 MG, TIW
     Route: 042
     Dates: start: 20210808, end: 20210830
  48. TRASTUZUMAB [Suspect]
     Active Substance: TRASTUZUMAB
     Indication: Breast cancer metastatic
     Dosage: 388.5 MG, Q3W
     Route: 042
     Dates: start: 20200606, end: 20200606
  49. MORPHINE SULFATE [Concomitant]
     Active Substance: MORPHINE SULFATE
     Route: 048
  50. MORPHINE SULFATE [Concomitant]
     Active Substance: MORPHINE SULFATE
     Dates: start: 20161101, end: 20161102
  51. RAMIPRIL [Concomitant]
     Active Substance: RAMIPRIL
     Dosage: 1.25 MG, QD
     Route: 065
     Dates: start: 20190102
  52. MORPHINE [Concomitant]
     Active Substance: MORPHINE
     Route: 048
     Dates: start: 20161102, end: 20161102
  53. MORPHINE SULFATE [Concomitant]
     Active Substance: MORPHINE SULFATE
     Dates: start: 20161101, end: 20161101
  54. PERTUZUMAB [Suspect]
     Active Substance: PERTUZUMAB
     Indication: Product used for unknown indication
     Route: 042
     Dates: start: 20160606
  55. TRASTUZUMAB [Suspect]
     Active Substance: TRASTUZUMAB
     Indication: Breast cancer metastatic
     Route: 042
     Dates: start: 20160606, end: 20160606
  56. DOCETAXEL [Suspect]
     Active Substance: DOCETAXEL
     Indication: Product used for unknown indication
     Dosage: 120 MG, TIW
     Route: 042
     Dates: start: 20160808, end: 20160830
  57. TRASTUZUMAB [Suspect]
     Active Substance: TRASTUZUMAB
     Indication: Product used for unknown indication
     Route: 042
     Dates: start: 20170517, end: 20170703
  58. TRASTUZUMAB [Suspect]
     Active Substance: TRASTUZUMAB
     Indication: Product used for unknown indication
     Route: 042
     Dates: start: 20160718, end: 20160830
  59. TRASTUZUMAB [Suspect]
     Active Substance: TRASTUZUMAB
     Indication: Product used for unknown indication
     Route: 042
     Dates: start: 20170201, end: 20170426

REACTIONS (7)
  - Ejection fraction decreased [Not Recovered/Not Resolved]
  - Anaemia [Recovered/Resolved]
  - Rhinorrhoea [Recovered/Resolved]
  - Lacrimation increased [Recovered/Resolved]
  - Neutropenia [Recovered/Resolved]
  - Lower respiratory tract infection [Recovered/Resolved]
  - Haemoglobin decreased [Recovered/Resolved]

NARRATIVE: CASE EVENT DATE: 20160715
